FAERS Safety Report 16445937 (Version 1)
Quarter: 2019Q2

REPORT INFORMATION
  Report Type: Report from Study
  Country: CA (occurrence: CA)
  Receive Date: 20190618
  Receipt Date: 20190618
  Transmission Date: 20190711
  Serious: Yes (Death, Other)
  Sender: FDA-Public Use
  Company Number: CA-WHANIN PHARM. CO., LTD.-2019M1036700

PATIENT
  Sex: Female
  Weight: 63 kg

DRUGS (1)
  1. CLOZAPINE. [Suspect]
     Active Substance: CLOZAPINE
     Indication: PRODUCT USED FOR UNKNOWN INDICATION
     Dosage: UNK
     Dates: start: 20161117

REACTIONS (3)
  - Lung infection [Fatal]
  - General physical health deterioration [Fatal]
  - Urinary tract infection [Fatal]
